FAERS Safety Report 11872469 (Version 1)
Quarter: 2015Q4

REPORT INFORMATION
  Report Type: Spontaneous
  Country: US (occurrence: US)
  Receive Date: 20151228
  Receipt Date: 20151228
  Transmission Date: 20160305
  Serious: No
  Sender: FDA-Public Use
  Company Number: US-IMPAX LABORATORIES, INC-2015COR00200

PATIENT
  Sex: Female

DRUGS (1)
  1. DEXTROAMPHETAMINE SULFATE IR [Suspect]
     Active Substance: DEXTROAMPHETAMINE SULFATE
     Indication: DEPRESSED LEVEL OF CONSCIOUSNESS
     Dosage: 10 MG, UNK
     Route: 048
     Dates: start: 201509

REACTIONS (3)
  - Intentional product use issue [Unknown]
  - Product physical issue [None]
  - Drug ineffective [Unknown]

NARRATIVE: CASE EVENT DATE: 201509
